FAERS Safety Report 26059625 (Version 1)
Quarter: 2025Q4

REPORT INFORMATION
  Report Type: Report from Study
  Country: US (occurrence: US)
  Receive Date: 20251118
  Receipt Date: 20251118
  Transmission Date: 20260118
  Serious: Yes (Hospitalization, Disabling, Other)
  Sender: PFIZER
  Company Number: US-PFIZER INC-PV202500133098

PATIENT
  Age: 63 Year
  Sex: Female
  Weight: 90.7 kg

DRUGS (7)
  1. VANCOMYCIN HYDROCHLORIDE [Suspect]
     Active Substance: VANCOMYCIN HYDROCHLORIDE
     Dosage: UNK
  2. LINEZOLID [Suspect]
     Active Substance: LINEZOLID
     Dosage: UNK
  3. RECORLEV [Suspect]
     Active Substance: LEVOKETOCONAZOLE
     Indication: Cushing^s syndrome
     Dosage: 150 MG, 2X/DAY
     Route: 048
     Dates: start: 202501, end: 20250214
  4. RECORLEV [Suspect]
     Active Substance: LEVOKETOCONAZOLE
     Dosage: 150 MG, 2X/DAY
     Route: 048
     Dates: start: 20250918, end: 20250919
  5. RECORLEV [Suspect]
     Active Substance: LEVOKETOCONAZOLE
     Dosage: 150 MG, 1X/DAY
     Route: 048
     Dates: start: 20250920, end: 2025
  6. RECORLEV [Suspect]
     Active Substance: LEVOKETOCONAZOLE
     Dosage: 150 MG, 1X/DAY
     Route: 048
     Dates: start: 2025, end: 2025
  7. RECORLEV [Suspect]
     Active Substance: LEVOKETOCONAZOLE
     Dosage: 150 MG, 1X/DAY
     Route: 048
     Dates: start: 2025

REACTIONS (25)
  - Kidney infection [Unknown]
  - Wound infection staphylococcal [Unknown]
  - Sepsis [Unknown]
  - Coronary artery stenosis [Unknown]
  - Transient ischaemic attack [Unknown]
  - Vaginal haemorrhage [Unknown]
  - Cystitis [Unknown]
  - Pyrexia [Unknown]
  - Fall [Unknown]
  - Wound [Not Recovered/Not Resolved]
  - Skin laceration [Unknown]
  - Bacterial infection [Unknown]
  - Cortisol increased [Unknown]
  - Weight increased [Unknown]
  - Wound contamination [Unknown]
  - Somnolence [Unknown]
  - Asthenia [Unknown]
  - Dysphemia [Unknown]
  - Fungal infection [Not Recovered/Not Resolved]
  - Varicose vein [Unknown]
  - Fatigue [Unknown]
  - Nausea [Not Recovered/Not Resolved]
  - Diarrhoea [Unknown]
  - Abdominal discomfort [Unknown]
  - Vomiting [Unknown]

NARRATIVE: CASE EVENT DATE: 20250101
